FAERS Safety Report 5407733-9 (Version None)
Quarter: 2007Q3

REPORT INFORMATION
  Report Type: 
  Country: None (occurrence: None)
  Receive Date: 20070803
  Receipt Date: 20070529
  Transmission Date: 20080115
  Serious: Yes (Other)
  Sender: FDA-Public Use
  Company Number: 001#1#2007-00380

PATIENT
  Age: 63 Year
  Sex: Male

DRUGS (1)
  1. NEUPRO [Suspect]
     Indication: PARKINSON'S DISEASE
     Dosage: 6 MG/24H (6 MG/24H, 1 IN 1 DAY(S)), TRANSDERMAL
     Route: 062
     Dates: start: 20060518, end: 20070521

REACTIONS (4)
  - AORTIC VALVE INCOMPETENCE [None]
  - CARDIAC VALVE DISEASE [None]
  - FIBROSIS [None]
  - MITRAL VALVE INCOMPETENCE [None]
